FAERS Safety Report 24046209 (Version 2)
Quarter: 2024Q3

REPORT INFORMATION
  Report Type: Spontaneous
  Country: JP (occurrence: JP)
  Receive Date: 20240703
  Receipt Date: 20240809
  Transmission Date: 20241016
  Serious: Yes (Hospitalization)
  Sender: BAYER
  Company Number: JP-BAYER-2024A082270

PATIENT
  Age: 65 Year
  Sex: Female

DRUGS (3)
  1. NEXAVAR [Suspect]
     Active Substance: SORAFENIB
     Indication: Hepatocellular carcinoma
     Dosage: DAILY DOSE 800 MG
     Dates: start: 20240501, end: 20240504
  2. NEXAVAR [Suspect]
     Active Substance: SORAFENIB
     Indication: Hepatocellular carcinoma
     Dosage: 400 MG, QD
     Dates: start: 20240508, end: 20240522
  3. CILNIDIPINE [Concomitant]
     Active Substance: CILNIDIPINE
     Indication: Product used for unknown indication
     Dosage: UNK

REACTIONS (10)
  - Ascites [Recovering/Resolving]
  - Pleural effusion [Recovering/Resolving]
  - Acute respiratory distress syndrome [Recovering/Resolving]
  - Pancreatitis acute [Recovered/Resolved with Sequelae]
  - Renal impairment [Recovering/Resolving]
  - Abdominal pain upper [Recovering/Resolving]
  - Abdominal pain [None]
  - Vomiting [None]
  - Dehydration [None]
  - Proteinuria [Recovering/Resolving]

NARRATIVE: CASE EVENT DATE: 20240505
